FAERS Safety Report 7675588-8 (Version None)
Quarter: 2011Q3

REPORT INFORMATION
  Report Type: 
  Country: None (occurrence: None)
  Receive Date: 20110810
  Receipt Date: 20110802
  Transmission Date: 20111222
  Serious: Yes (Other)
  Sender: FDA-Public Use
  Company Number: BR-US-EMD SERONO, INC.-7056157

PATIENT
  Sex: Female
  Weight: 70 kg

DRUGS (6)
  1. LOSARTAN POTASSIUM [Concomitant]
  2. HIDRION [Concomitant]
  3. PURAN T4 (T4 HORMONE REPLACEMENT AND THYROID CONTROL) [Concomitant]
  4. REBIF [Suspect]
     Indication: RELAPSING-REMITTING MULTIPLE SCLEROSIS
     Dates: start: 20100728
  5. ATENSINE [Concomitant]
  6. PROPRANOLOL [Concomitant]
     Indication: HYPERTENSION

REACTIONS (7)
  - HYPERTENSION [None]
  - ELECTROCARDIOGRAM REPOLARISATION ABNORMALITY [None]
  - ELECTROCARDIOGRAM ABNORMAL [None]
  - WEIGHT INCREASED [None]
  - FATIGUE [None]
  - CARDIAC HYPERTROPHY [None]
  - DYSPNOEA [None]
